FAERS Safety Report 13232053 (Version 2)
Quarter: 2017Q1

REPORT INFORMATION
  Report Type: Spontaneous
  Country: US (occurrence: US)
  Receive Date: 20170214
  Receipt Date: 20170303
  Transmission Date: 20170428
  Serious: Yes (Hospitalization)
  Sender: FDA-Public Use
  Company Number: US-BLISTEX INC.-1063081

PATIENT
  Age: 47 Year
  Sex: Male

DRUGS (2)
  1. KANKA SOFTBRUSH [Concomitant]
     Active Substance: BENZOCAINE\ZINC CHLORIDE
     Route: 048
     Dates: start: 20170118
  2. KANK-A MOUTH PAIN [Suspect]
     Active Substance: BENZOCAINE
     Route: 048
     Dates: start: 20170118

REACTIONS (1)
  - Adverse reaction [Unknown]

NARRATIVE: CASE EVENT DATE: 20170118
